FAERS Safety Report 24803262 (Version 1)
Quarter: 2025Q1

REPORT INFORMATION
  Report Type: Spontaneous
  Country: US (occurrence: US)
  Receive Date: 20250103
  Receipt Date: 20250103
  Transmission Date: 20250408
  Serious: No
  Sender: ABBVIE
  Company Number: US-ABBVIE-6067247

PATIENT
  Age: 85 Year
  Sex: Female
  Weight: 61 kg

DRUGS (2)
  1. CYCLOSPORINE [Suspect]
     Active Substance: CYCLOSPORINE
     Indication: Dry eye
     Dosage: STRENGTH 0.05 % ONE DROP IN EACH EYE, TWICE A DAY
     Route: 047
     Dates: end: 202412
  2. TRAVOPROST [Concomitant]
     Active Substance: TRAVOPROST
     Indication: Glaucoma

REACTIONS (3)
  - Liquid product physical issue [Unknown]
  - Eye irritation [Recovering/Resolving]
  - Eye irritation [Recovering/Resolving]
